FAERS Safety Report 5677846-5 (Version None)
Quarter: 2008Q1

REPORT INFORMATION
  Report Type: 
  Country: None (occurrence: None)
  Receive Date: 20080319
  Receipt Date: 20080303
  Transmission Date: 20080703
  Serious: Yes (Hospitalization)
  Sender: FDA-Public Use
  Company Number: 2007S1000557

PATIENT
  Age: 54 Year
  Sex: Male
  Weight: 82.55 kg

DRUGS (4)
  1. CUBICIN [Suspect]
     Indication: POSTOPERATIVE WOUND INFECTION
     Dosage: 6 MG;Q24H;IV
     Route: 042
     Dates: start: 20071023, end: 20071104
  2. OMEPRAZOLE [Concomitant]
  3. LOSARTAN POTASSIUM [Concomitant]
  4. PERINDOPRIL [Concomitant]

REACTIONS (13)
  - BACTERIAL INFECTION [None]
  - BIOPSY LUNG ABNORMAL [None]
  - BLOOD ALKALINE PHOSPHATASE INCREASED [None]
  - EMBOLISM [None]
  - EOSINOPHILIA [None]
  - HISTOLOGY ABNORMAL [None]
  - LUNG INFILTRATION [None]
  - NIGHT SWEATS [None]
  - PLEURITIC PAIN [None]
  - PRODUCTIVE COUGH [None]
  - PSEUDOMONAS INFECTION [None]
  - PYREXIA [None]
  - SPUTUM CULTURE POSITIVE [None]
